FAERS Safety Report 6875051-8 (Version None)
Quarter: 2010Q2

REPORT INFORMATION
  Report Type: 
  Country: None (occurrence: None)
  Receive Date: 20100610
  Receipt Date: 20100218
  Transmission Date: 20101027
  Serious: No
  Sender: FDA-Public Use
  Company Number: 2010SP011122

PATIENT
  Age: 31 Year
  Sex: Male

DRUGS (5)
  1. SAPHRIS [Suspect]
     Indication: DRUG USE FOR UNKNOWN INDICATION
     Dosage: 5 MG;QD; 10 MG; 10 MG; BID
     Dates: start: 20100204, end: 20100212
  2. SAPHRIS [Suspect]
     Indication: DRUG USE FOR UNKNOWN INDICATION
     Dosage: 5 MG;QD; 10 MG; 10 MG; BID
     Dates: start: 20100113
  3. TRAZODONE HCL [Concomitant]
  4. NEURONTIN [Concomitant]
  5. CLONAZEPAM [Concomitant]

REACTIONS (2)
  - FEELING OF BODY TEMPERATURE CHANGE [None]
  - INAPPROPRIATE SCHEDULE OF DRUG ADMINISTRATION [None]
